FAERS Safety Report 8807953 (Version 1)
Quarter: 2012Q4

REPORT INFORMATION
  Report Type: 
  Country: US (occurrence: US)
  Receive Date: 20120925
  Receipt Date: 20120925
  Transmission Date: 20130627
  Serious: Yes (Other)
  Sender: FDA-Public Use
  Company Number: US-ROCHE-1125031

PATIENT
  Sex: Female

DRUGS (12)
  1. AVASTIN [Suspect]
     Indication: BREAST CANCER FEMALE
     Route: 065
     Dates: start: 20070213
  2. AVASTIN [Suspect]
     Indication: BREAST CANCER FEMALE
     Route: 065
     Dates: start: 20070301
  3. AVASTIN [Suspect]
     Route: 065
     Dates: start: 20070315
  4. AVASTIN [Suspect]
     Route: 065
     Dates: start: 20070327
  5. AVASTIN [Suspect]
     Route: 065
     Dates: start: 20070412
  6. AVASTIN [Suspect]
     Route: 065
     Dates: start: 20070426
  7. AVASTIN [Suspect]
     Route: 065
     Dates: start: 20070510
  8. AVASTIN [Suspect]
     Route: 065
     Dates: start: 20070522
  9. HERCEPTIN [Suspect]
     Indication: PRODUCT USED FOR UNKNOWN INDICATION
     Route: 065
  10. ADRIAMYCIN [Concomitant]
  11. CYTOXAN [Concomitant]
  12. TAXOL [Concomitant]

REACTIONS (1)
  - Metastasis [Unknown]
